FAERS Safety Report 9184586 (Version 1)
Quarter: 2013Q1

REPORT INFORMATION
  Report Type: Report from Study
  Country: FR (occurrence: FR)
  Receive Date: 20130324
  Receipt Date: 20130324
  Transmission Date: 20140127
  Serious: Yes (Hospitalization)
  Sender: FDA-Public Use
  Company Number: FR-ABBOTT-13P-056-1063751-00

PATIENT
  Age: 36 Year
  Sex: Male

DRUGS (10)
  1. HUMIRA [Suspect]
     Indication: CROHN^S DISEASE
     Dosage: 160 MG (BASELINE)/80 MG (WEEK 2)
     Route: 058
     Dates: start: 20090629, end: 20090917
  2. HUMIRA [Suspect]
     Route: 058
     Dates: start: 20090917, end: 20100412
  3. SMECTA [Concomitant]
     Indication: DIARRHOEA
     Dates: start: 20090915
  4. LOPERAMIDE SANDOZ [Concomitant]
     Indication: DIARRHOEA
     Dates: start: 20090915
  5. VISCERALGINE [Concomitant]
     Indication: ABDOMINAL PAIN
     Dates: start: 20090915
  6. TRIMEBUTINE [Concomitant]
     Indication: ABDOMINAL PAIN
     Dates: start: 20090915
  7. IXPRIM [Concomitant]
     Indication: PAIN
     Dates: start: 20090915
  8. VOGALENE [Concomitant]
     Indication: NAUSEA
     Dates: start: 20090915
  9. CORTANCYL [Concomitant]
     Indication: CROHN^S DISEASE
     Dates: start: 20100414
  10. REMICADE [Concomitant]
     Indication: CROHN^S DISEASE
     Dates: start: 20100713

REACTIONS (1)
  - Subileus [Unknown]
